FAERS Safety Report 17064744 (Version 1)
Quarter: 2019Q4

REPORT INFORMATION
  Report Type: Spontaneous
  Country: DE (occurrence: DE)
  Receive Date: 20191122
  Receipt Date: 20191122
  Transmission Date: 20200122
  Serious: Yes (Other)
  Sender: FDA-Public Use
  Company Number: DE-TEVA-2019-DE-1137852

PATIENT
  Age: 5 Decade
  Sex: Male

DRUGS (1)
  1. RANITIDIN-RATIOPHARM 150 MG FILMTABLETTEN [Suspect]
     Active Substance: RANITIDINE HYDROCHLORIDE
     Dosage: USED FOR YEARS
     Route: 048

REACTIONS (2)
  - Colon cancer [Unknown]
  - Product impurity [Unknown]

NARRATIVE: CASE EVENT DATE: 2018
